FAERS Safety Report 10178303 (Version 1)
Quarter: 2014Q2

REPORT INFORMATION
  Report Type: Spontaneous
  Country: US (occurrence: None)
  Receive Date: 20140516
  Receipt Date: 20140516
  Transmission Date: 20141212
  Serious: No
  Sender: FDA-Public Use
  Company Number: None

PATIENT
  Age: 33 Year
  Sex: Male
  Weight: 120.2 kg

DRUGS (2)
  1. OXYCODONE HCL [Suspect]
     Indication: SPINAL COLUMN STENOSIS
     Route: 048
     Dates: start: 20140413, end: 20140514
  2. OXYCODONE ER 30MG [Concomitant]

REACTIONS (4)
  - Drug ineffective [None]
  - Product quality issue [None]
  - Product formulation issue [None]
  - Product substitution issue [None]
